FAERS Safety Report 20229720 (Version 1)
Quarter: 2021Q4

REPORT INFORMATION
  Report Type: Report from Study
  Country: KR (occurrence: None)
  Receive Date: 20211226
  Receipt Date: 20211226
  Transmission Date: 20220304
  Serious: Yes (Hospitalization)
  Sender: FDA-Public Use
  Company Number: KR-Merck Healthcare KGaA-9288470

PATIENT
  Sex: Female

DRUGS (1)
  1. SAIZEN [Suspect]
     Active Substance: SOMATROPIN
     Indication: Product used for unknown indication
     Dates: start: 20200306

REACTIONS (1)
  - Lower limb fracture [Unknown]
